FAERS Safety Report 7598442-9 (Version None)
Quarter: 2011Q3

REPORT INFORMATION
  Report Type: 
  Country: None (occurrence: None)
  Receive Date: 20110708
  Receipt Date: 20110705
  Transmission Date: 20111222
  Serious: Yes (Other)
  Sender: FDA-Public Use
  Company Number: US-MERCK-1106USA02367

PATIENT
  Age: 62 Year
  Sex: Male

DRUGS (3)
  1. DEXAMETHASONE [Concomitant]
     Route: 065
     Dates: start: 20110404
  2. IVEMEND [Suspect]
     Indication: ANTIEMETIC SUPPORTIVE CARE
     Route: 041
     Dates: start: 20110404
  3. ZOFRAN [Concomitant]
     Route: 065
     Dates: start: 20110404

REACTIONS (2)
  - FLUSHING [None]
  - CHEST PAIN [None]
